FAERS Safety Report 21554071 (Version 5)
Quarter: 2023Q2

REPORT INFORMATION
  Report Type: Other
  Country: CN (occurrence: None)
  Receive Date: 20221104
  Receipt Date: 20230517
  Transmission Date: 20230722
  Serious: Yes (Other)
  Sender: FDA-Public Use
  Company Number: CN-ROCHE-3208951

PATIENT
  Age: 56 Year
  Sex: Female
  Weight: 60 kg

DRUGS (1)
  1. ALECENSA [Suspect]
     Active Substance: ALECTINIB HYDROCHLORIDE
     Indication: Lung neoplasm malignant
     Dosage: 150MG*56CAPSULES*4 SMALL BOXES, 1 DF = 1 CAPSULE
     Route: 048
     Dates: start: 20200902

REACTIONS (22)
  - Dry mouth [Unknown]
  - Dysgeusia [Unknown]
  - Mouth ulceration [Unknown]
  - Constipation [Not Recovered/Not Resolved]
  - Blood bilirubin increased [Unknown]
  - Vision blurred [Unknown]
  - Ophthalmoplegia [Unknown]
  - Oedema [Unknown]
  - Weight increased [Unknown]
  - Capillary disorder [Unknown]
  - Rash [Unknown]
  - Blood creatinine increased [Unknown]
  - Blood uric acid increased [Unknown]
  - Abdominal discomfort [Unknown]
  - Metastases to bone [Unknown]
  - Anaemia [Not Recovered/Not Resolved]
  - Hepatic function abnormal [Not Recovered/Not Resolved]
  - COVID-19 [Unknown]
  - Heart disease congenital [Unknown]
  - Blood bilirubin abnormal [Not Recovered/Not Resolved]
  - Coagulopathy [Unknown]
  - Heart rate decreased [Not Recovered/Not Resolved]

NARRATIVE: CASE EVENT DATE: 20220101
